FAERS Safety Report 12679192 (Version 1)
Quarter: 2016Q3

REPORT INFORMATION
  Report Type: Spontaneous
  Country: US (occurrence: US)
  Receive Date: 20160824
  Receipt Date: 20160824
  Transmission Date: 20161109
  Serious: Yes (Other)
  Sender: FDA-Public Use
  Company Number: US-CIPLA LTD.-2016US17614

PATIENT

DRUGS (3)
  1. GEMCITABINE [Suspect]
     Active Substance: GEMCITABINE\GEMCITABINE HYDROCHLORIDE
     Dosage: 1000 MG/M2, UNK (3 ADDITIONAL CYCLES)
     Route: 042
     Dates: start: 20131015, end: 20131210
  2. GEMCITABINE [Suspect]
     Active Substance: GEMCITABINE\GEMCITABINE HYDROCHLORIDE
     Indication: DUCTAL ADENOCARCINOMA OF PANCREAS
     Dosage: 1000 MG/M2, UNK (ONE CYCLE)
     Route: 042
     Dates: start: 20130703, end: 20130717
  3. FLUOROURACIL. [Suspect]
     Active Substance: FLUOROURACIL
     Indication: DUCTAL ADENOCARCINOMA OF PANCREAS
     Dosage: 250 MG/M2, UNK
     Route: 065
     Dates: start: 20130812, end: 20130919

REACTIONS (4)
  - Recall phenomenon [Unknown]
  - Transaminases increased [Recovered/Resolved]
  - Carbohydrate antigen 19-9 increased [Recovered/Resolved]
  - Inflammation [Unknown]
